FAERS Safety Report 5813176-6 (Version None)
Quarter: 2008Q3

REPORT INFORMATION
  Report Type: 
  Country: None (occurrence: None)
  Receive Date: 20080711
  Receipt Date: 20080626
  Transmission Date: 20090109
  Serious: Yes (Other)
  Sender: FDA-Public Use
  Company Number: TRP_05655_2008

PATIENT
  Sex: Female

DRUGS (5)
  1. RIBAVIRIN [Suspect]
     Indication: HEPATITIS C VIRUS TEST
     Dosage: (800 MG ORAL)
     Route: 048
     Dates: start: 20080116, end: 20080505
  2. PEGASYS [Suspect]
     Indication: HEPATITIS C VIRUS TEST
     Dosage: (135 ?G 1X/WEEK SUBCUTANEOUS), (180 ?G 1X/WEEK SUBCUTANEOUS)
     Route: 058
     Dates: start: 20080101, end: 20080430
  3. PEGASYS [Suspect]
     Indication: HEPATITIS C VIRUS TEST
     Dosage: (135 ?G 1X/WEEK SUBCUTANEOUS), (180 ?G 1X/WEEK SUBCUTANEOUS)
     Route: 058
     Dates: start: 20080116
  4. NEUPOGEN [Concomitant]
  5. PROCRIT [Concomitant]

REACTIONS (18)
  - ANAEMIA [None]
  - ANOREXIA [None]
  - ANXIETY [None]
  - ASTHENIA [None]
  - BLISTER [None]
  - CHEST PAIN [None]
  - DIZZINESS [None]
  - DRUG EFFECT DECREASED [None]
  - DRY SKIN [None]
  - DYSPNOEA [None]
  - FATIGUE [None]
  - HERPES ZOSTER [None]
  - JOINT INJURY [None]
  - NEUTROPHIL COUNT DECREASED [None]
  - PAIN [None]
  - PLATELET COUNT DECREASED [None]
  - QUALITY OF LIFE DECREASED [None]
  - WHITE BLOOD CELL COUNT DECREASED [None]
